FAERS Safety Report 8062553-4 (Version None)
Quarter: 2012Q1

REPORT INFORMATION
  Report Type: 
  Country: None (occurrence: None)
  Receive Date: 20120117
  Receipt Date: 20120106
  Transmission Date: 20120608
  Serious: Yes (Life-Threatening)
  Sender: FDA-Public Use
  Company Number: 1155578

PATIENT
  Age: 74 Year
  Sex: Female

DRUGS (3)
  1. CAPECITABINE [Concomitant]
  2. OXALIPLATIN [Suspect]
     Indication: COLORECTAL CANCER METASTATIC
     Dosage: 1ST CYCLE: 130MG/M^2
     Dates: start: 20111221, end: 20111221
  3. DEXTROSE [Concomitant]

REACTIONS (3)
  - DYSPNOEA [None]
  - OEDEMA MOUTH [None]
  - LOCAL SWELLING [None]
